FAERS Safety Report 23082961 (Version 4)
Quarter: 2024Q2

REPORT INFORMATION
  Report Type: Other
  Country: CA (occurrence: CA)
  Receive Date: 20231019
  Receipt Date: 20240628
  Transmission Date: 20240715
  Serious: No
  Sender: FDA-Public Use
  Company Number: CA-TOLMAR, INC.-23CA043810

PATIENT
  Age: 81 Year
  Sex: Male

DRUGS (5)
  1. ELIGARD [Suspect]
     Active Substance: LEUPROLIDE ACETATE
     Indication: Prostate cancer
     Dosage: 22.5 MILLIGRAM, Q 3 MONTH
     Route: 058
     Dates: start: 20231003
  2. ELIGARD [Suspect]
     Active Substance: LEUPROLIDE ACETATE
     Dosage: 22.5 MILLIGRAM, Q 3 MONTH
     Route: 058
     Dates: start: 20231227
  3. ELIGARD [Suspect]
     Active Substance: LEUPROLIDE ACETATE
     Dosage: 22.5 MILLIGRAM, Q 3 MONTH
     Route: 058
     Dates: start: 20240319
  4. ELIGARD [Suspect]
     Active Substance: LEUPROLIDE ACETATE
     Dosage: 22.5 MILLIGRAM, Q 3 MONTH
     Route: 058
     Dates: start: 20240611
  5. ELIGARD [Suspect]
     Active Substance: LEUPROLIDE ACETATE
     Indication: Prostate cancer
     Dosage: UNK

REACTIONS (5)
  - Injection site pain [Recovered/Resolved]
  - Injection site mass [Unknown]
  - Hot flush [Unknown]
  - Hyperhidrosis [Unknown]
  - Fatigue [Unknown]

NARRATIVE: CASE EVENT DATE: 20231003
